FAERS Safety Report 25658933 (Version 1)
Quarter: 2025Q3

REPORT INFORMATION
  Report Type: Spontaneous
  Country: US (occurrence: US)
  Receive Date: 20250808
  Receipt Date: 20250808
  Transmission Date: 20251020
  Serious: No
  Sender: IPSEN BIOPHARMACEUTICALS, INC.
  Company Number: US-IPSEN Group, Research and Development-2025-18710

PATIENT
  Age: 53 Year
  Sex: Female
  Weight: 62 kg

DRUGS (35)
  1. TAZVERIK [Suspect]
     Active Substance: TAZEMETOSTAT HYDROBROMIDE
     Indication: Off label use
     Dates: start: 20241126
  2. ACETAMINOPHEN [Concomitant]
     Active Substance: ACETAMINOPHEN
  3. Afrin No Drip Sinus Nasal Solution [Concomitant]
  4. ALLEGRA [Concomitant]
     Active Substance: FEXOFENADINE HYDROCHLORIDE
  5. ALPHA LIPOIC ACID [Concomitant]
     Active Substance: .ALPHA.-LIPOIC ACID
  6. AMOXICILLIN [Concomitant]
     Active Substance: AMOXICILLIN
  7. AMOXICILLIN\CLAVULANATE POTASSIUM [Concomitant]
     Active Substance: AMOXICILLIN\CLAVULANATE POTASSIUM
  8. ASPIRIN [Concomitant]
     Active Substance: ASPIRIN
  9. ATENOLOL [Concomitant]
     Active Substance: ATENOLOL
  10. ATENOLOL [Concomitant]
     Active Substance: ATENOLOL
  11. BACLOFEN [Concomitant]
     Active Substance: BACLOFEN
  12. BENADRYL [Concomitant]
     Active Substance: DIPHENHYDRAMINE HYDROCHLORIDE
  13. BIOTIN [Concomitant]
     Active Substance: BIOTIN
  14. CALCIUM CARBONATE\VITAMIN D [Concomitant]
     Active Substance: CALCIUM CARBONATE\VITAMIN D
  15. LORATADINE [Concomitant]
     Active Substance: LORATADINE
  16. DOCUSATE SODIUM [Concomitant]
     Active Substance: DOCUSATE SODIUM
  17. ESTRADIOL [Concomitant]
     Active Substance: ESTRADIOL
  18. FAMOTIDINE [Concomitant]
     Active Substance: FAMOTIDINE
  19. FLONASE ALLERGY RELIEF [Concomitant]
     Active Substance: FLUTICASONE PROPIONATE
  20. FOSFOMYCIN TROMETHAMINE [Concomitant]
     Active Substance: FOSFOMYCIN TROMETHAMINE
  21. GUANFACINE [Concomitant]
     Active Substance: GUANFACINE
  22. MINERALS\VITAMINS [Concomitant]
     Active Substance: MINERALS\VITAMINS
  23. NEURONTIN [Concomitant]
     Active Substance: GABAPENTIN
  24. ONDANSETRON HYDROCHLORIDE [Concomitant]
     Active Substance: ONDANSETRON HYDROCHLORIDE
  25. CALCIUM\CHOLECALCIFEROL [Concomitant]
     Active Substance: CALCIUM\CHOLECALCIFEROL
  26. SIMETHICONE (DIMETHICONE) [Concomitant]
     Active Substance: DIMETHICONE
  27. LOPERAMIDE HYDROCHLORIDE [Concomitant]
     Active Substance: LOPERAMIDE HYDROCHLORIDE
  28. LORAZEPAM [Concomitant]
     Active Substance: LORAZEPAM
  29. L-ARGININE ACETATE [Concomitant]
  30. TERBINAFINE HYDROCHLORIDE [Concomitant]
     Active Substance: TERBINAFINE HYDROCHLORIDE
  31. TRAMADOL HCL [Concomitant]
     Active Substance: TRAMADOL HYDROCHLORIDE
  32. TRIAMCINOLONE ACETONIDE [Concomitant]
     Active Substance: TRIAMCINOLONE ACETONIDE
  33. TYLENOL EXTRA STRENGTH [Concomitant]
     Active Substance: ACETAMINOPHEN
  34. ZEPBOUND [Concomitant]
     Active Substance: TIRZEPATIDE
  35. ZYRTEC [Concomitant]
     Active Substance: CETIRIZINE HYDROCHLORIDE

REACTIONS (4)
  - Hypersensitivity [Not Recovered/Not Resolved]
  - Rash [Not Recovered/Not Resolved]
  - Urinary tract infection [Recovering/Resolving]
  - Off label use [Unknown]
